FAERS Safety Report 5929331-0 (Version None)
Quarter: 2008Q4

REPORT INFORMATION
  Report Type: 
  Country: None (occurrence: None)
  Receive Date: 20081023
  Receipt Date: 20081023
  Transmission Date: 20090506
  Serious: Yes (Hospitalization)
  Sender: FDA-Public Use
  Company Number: None

PATIENT
  Age: 53 Year
  Sex: Male
  Weight: 127.6876 kg

DRUGS (18)
  1. GEMZAR [Suspect]
     Indication: PANCREATIC CARCINOMA STAGE IV
     Dosage: 760 MG/MG IV DAYS1 + 8
     Route: 042
     Dates: start: 20080506, end: 20080926
  2. XELODA [Suspect]
     Dosage: 850MG/M2 PO BID DAY1-14
     Route: 048
     Dates: start: 20080506, end: 20080926
  3. METOCLOPRAMIDE [Concomitant]
  4. PRILOSEC [Concomitant]
  5. ASPIRIN [Concomitant]
  6. SIMVASTATIN [Concomitant]
  7. LISONPRIL [Concomitant]
  8. ALPRAZOLAM [Concomitant]
  9. LEXAPRO [Concomitant]
  10. REGLAN [Concomitant]
  11. PREVACID [Concomitant]
  12. INSULIN [Concomitant]
  13. OMEPRAZOLE [Concomitant]
  14. SPIRONOLACTONE [Concomitant]
  15. MS CONTIN [Concomitant]
  16. MIRALAX [Concomitant]
  17. DOCUSATE [Concomitant]
  18. SENNA [Concomitant]

REACTIONS (6)
  - ABDOMINAL PAIN [None]
  - ASCITES [None]
  - DISEASE PROGRESSION [None]
  - NAUSEA [None]
  - PALMAR-PLANTAR ERYTHRODYSAESTHESIA SYNDROME [None]
  - VOMITING [None]
